FAERS Safety Report 9742703 (Version 2)
Quarter: 2015Q3

REPORT INFORMATION
  Report Type: Spontaneous
  Country: US (occurrence: US)
  Receive Date: 20131210
  Receipt Date: 20150805
  Transmission Date: 20151125
  Serious: No
  Sender: FDA-Public Use
  Company Number: US-GILEAD-2009-0025715

PATIENT
  Age: 73 Year
  Sex: Male
  Weight: 84.37 kg

DRUGS (21)
  1. SPIRIVA [Concomitant]
     Active Substance: TIOTROPIUM BROMIDE MONOHYDRATE
  2. PRILOSEC [Concomitant]
     Active Substance: OMEPRAZOLE MAGNESIUM
  3. CARDIZEM [Concomitant]
     Active Substance: DILTIAZEM HYDROCHLORIDE
  4. VITAMIN B12 [Concomitant]
     Active Substance: CYANOCOBALAMIN
  5. SINGULAIR [Concomitant]
     Active Substance: MONTELUKAST SODIUM
  6. LOPRESSOR [Concomitant]
     Active Substance: METOPROLOL TARTRATE
  7. DIOVAN [Concomitant]
     Active Substance: VALSARTAN
  8. ALLOPURINOL. [Concomitant]
     Active Substance: ALLOPURINOL
  9. PRINZIDE [Concomitant]
     Active Substance: HYDROCHLOROTHIAZIDE\LISINOPRIL
  10. ZOCOR [Concomitant]
     Active Substance: SIMVASTATIN
  11. BYETTA [Concomitant]
     Active Substance: EXENATIDE
  12. LOVASTATIN. [Concomitant]
     Active Substance: LOVASTATIN
  13. CIPRO [Concomitant]
     Active Substance: CIPROFLOXACIN HYDROCHLORIDE
  14. GLIPIZIDE. [Concomitant]
     Active Substance: GLIPIZIDE
  15. AZOPT [Concomitant]
     Active Substance: BRINZOLAMIDE
  16. TRAVATAN [Concomitant]
     Active Substance: TRAVOPROST
  17. ASPIRIN. [Concomitant]
     Active Substance: ASPIRIN
  18. PLAVIX [Concomitant]
     Active Substance: CLOPIDOGREL BISULFATE
  19. LETAIRIS [Suspect]
     Active Substance: AMBRISENTAN
     Indication: PULMONARY ARTERIAL HYPERTENSION
     Route: 048
     Dates: start: 20091018
  20. ADVAIR HFA [Concomitant]
     Active Substance: FLUTICASONE PROPIONATE\SALMETEROL XINAFOATE
  21. FERROUS SULFATE [Concomitant]
     Active Substance: FERROUS SULFATE\FERROUS SULFATE, DRIED

REACTIONS (1)
  - Dyspnoea [Unknown]
